FAERS Safety Report 7091841-3 (Version None)
Quarter: 2010Q4

REPORT INFORMATION
  Report Type: 
  Country: None (occurrence: None)
  Receive Date: 20101109
  Receipt Date: 20101027
  Transmission Date: 20110411
  Serious: Yes (Hospitalization, Other)
  Sender: FDA-Public Use
  Company Number: US-ELI_LILLY_AND_COMPANY-US201009005044

PATIENT
  Age: 55 Year
  Sex: Female
  Weight: 83.447 kg

DRUGS (9)
  1. CYMBALTA [Suspect]
     Indication: DEPRESSION
     Dosage: 30 MG, UNKNOWN
     Route: 065
     Dates: start: 20070101
  2. CYMBALTA [Suspect]
     Dosage: 60 MG, DAILY (1/D)
     Route: 065
     Dates: start: 20080801
  3. ZEBUTAL [Concomitant]
     Indication: PAIN
     Dosage: UNK, AS NEEDED
     Dates: end: 20100906
  4. OMEPRAZOLE [Concomitant]
     Dosage: 20 MG, UNK
  5. ZOLPIDEM [Concomitant]
     Dosage: 1 D/F, UNK
  6. ESTRADIOL [Concomitant]
     Dosage: 1 MG, DAILY (1/D)
  7. PERCOCET [Concomitant]
     Dosage: 1 D/F, AS NEEDED
  8. VITAMIN D3 [Concomitant]
     Dosage: 1000 MG, UNK
  9. GABAPENTIN [Concomitant]
     Dosage: 1 D/F, EACH EVENING

REACTIONS (3)
  - DRUG INTERACTION [None]
  - POST PROCEDURAL HAEMORRHAGE [None]
  - RECTOCELE [None]
